FAERS Safety Report 6782308-8 (Version None)
Quarter: 2010Q2

REPORT INFORMATION
  Report Type: 
  Country: None (occurrence: None)
  Receive Date: 20100621
  Receipt Date: 20100611
  Transmission Date: 20101027
  Serious: Yes (Other)
  Sender: FDA-Public Use
  Company Number: JP-BRISTOL-MYERS SQUIBB COMPANY-15121940

PATIENT
  Age: 67 Year
  Sex: Female
  Weight: 60 kg

DRUGS (9)
  1. ABILIFY [Suspect]
     Indication: SCHIZOPHRENIA
     Dosage: 6MG TABS
     Route: 048
     Dates: start: 20091106, end: 20100428
  2. OLANZAPINE [Suspect]
     Dosage: TABS
     Dates: start: 20100227, end: 20100227
  3. EURODIN [Concomitant]
     Dosage: FORM: TABLET
     Dates: end: 20100428
  4. BROTIZOLAM [Concomitant]
     Dosage: FORM: TABLET
     Dates: end: 20100428
  5. MAGMITT [Concomitant]
     Dosage: FORM: TABLET
     Dates: start: 20091006, end: 20100428
  6. DAI-KENCHU-TO [Concomitant]
     Dosage: FORM: GRANULE
     Dates: start: 20091006, end: 20100428
  7. CONTOMIN [Concomitant]
     Dosage: FORM: TABLET
     Dates: start: 20100413, end: 20100428
  8. TASMOLIN [Concomitant]
     Dosage: FORM: TABLET
     Dates: start: 20100423, end: 20100428
  9. ARIMIDEX [Concomitant]
     Dosage: FORM: TABLET
     Dates: end: 20100428

REACTIONS (4)
  - COMA [None]
  - CONVULSION [None]
  - RHABDOMYOLYSIS [None]
  - SCHIZOPHRENIA [None]
